FAERS Safety Report 5209422-2 (Version None)
Quarter: 2007Q1

REPORT INFORMATION
  Report Type: 
  Country: None (occurrence: None)
  Receive Date: 20070116
  Receipt Date: 20070102
  Transmission Date: 20070707
  Serious: Yes (Hospitalization)
  Sender: FDA-Public Use
  Company Number: US-ELI_LILLY_AND_COMPANY-US200701000175

PATIENT
  Age: 77 Year
  Sex: Female

DRUGS (5)
  1. FORTEO [Suspect]
     Indication: OSTEOPOROSIS
     Dosage: UNK, UNK
     Dates: start: 20060501, end: 20061101
  2. FORTEO [Suspect]
     Dates: start: 20060901, end: 20060101
  3. LOTREL [Concomitant]
  4. CRESTOR [Concomitant]
     Dosage: 5 MG, UNK
  5. LEXAPRO                                 /USA/ [Concomitant]

REACTIONS (1)
  - CHEST PAIN [None]
